FAERS Safety Report 4834662-1 (Version None)
Quarter: 2005Q4

REPORT INFORMATION
  Report Type: 
  Country: None (occurrence: None)
  Receive Date: 20051122
  Receipt Date: 20051115
  Transmission Date: 20060501
  Serious: Yes (Other)
  Sender: FDA-Public Use
  Company Number: US-GLAXOSMITHKLINE-A0582922A

PATIENT
  Age: 57 Year
  Sex: Female

DRUGS (2)
  1. WELLBUTRIN XL [Suspect]
     Indication: DEPRESSION
     Dosage: 300MG UNKNOWN
     Route: 048
     Dates: end: 20051101
  2. RESTORIL [Concomitant]

REACTIONS (7)
  - ABNORMAL DREAMS [None]
  - ANGER [None]
  - CRYING [None]
  - DISTURBANCE IN ATTENTION [None]
  - EYE INFECTION [None]
  - INSOMNIA [None]
  - SUICIDAL IDEATION [None]
